FAERS Safety Report 8253235-4 (Version None)
Quarter: 2012Q2

REPORT INFORMATION
  Report Type: 
  Country: None (occurrence: None)
  Receive Date: 20120402
  Receipt Date: 20120307
  Transmission Date: 20120825
  Serious: No
  Sender: FDA-Public Use
  Company Number: US-AMGEN-USASP2012015236

PATIENT
  Age: 62 Year
  Sex: Female

DRUGS (1)
  1. ENBREL [Suspect]
     Indication: PSORIATIC ARTHROPATHY
     Dosage: 50 MG, QWK
     Dates: start: 20060101

REACTIONS (6)
  - MUSCLE RUPTURE [None]
  - CARPAL TUNNEL DECOMPRESSION [None]
  - TENDON RUPTURE [None]
  - EXOSTOSIS [None]
  - ARTHRALGIA [None]
  - JOINT SWELLING [None]
